FAERS Safety Report 9587275 (Version 1)
Quarter: 2013Q4

REPORT INFORMATION
  Report Type: Spontaneous
  Country: DE (occurrence: DE)
  Receive Date: 20131003
  Receipt Date: 20131003
  Transmission Date: 20140711
  Serious: Yes (Congenital Anomaly)
  Sender: FDA-Public Use
  Company Number: GXKR2013DE003154

PATIENT
  Age: 1 Day
  Sex: Male
  Weight: 3.25 kg

DRUGS (3)
  1. CITALOPRAM [Suspect]
     Dosage: MATERNAL DOSE: 40-60MG/DAY; EXACT DOSE UNCERTAIN
     Route: 064
  2. PARACETAMOL [Concomitant]
     Dosage: MATERNAL EXPOSURE DURING 1 TRIMESTER
     Route: 064
  3. FEMIBION [Concomitant]
     Dosage: MATERNAL DOSE: 0.4MG/DAY FROM 6.-12. GW
     Route: 064

REACTIONS (3)
  - Choanal atresia [Recovered/Resolved with Sequelae]
  - Hydrocele [Recovering/Resolving]
  - Foetal exposure during pregnancy [Unknown]
